FAERS Safety Report 20763085 (Version 1)
Quarter: 2022Q2

REPORT INFORMATION
  Report Type: Spontaneous
  Country: US (occurrence: None)
  Receive Date: 20220428
  Receipt Date: 20220428
  Transmission Date: 20220720
  Serious: Yes (Other)
  Sender: FDA-Public Use
  Company Number: None

PATIENT
  Sex: Female

DRUGS (2)
  1. LOVASTATIN [Suspect]
     Active Substance: LOVASTATIN
  2. PRAVASTATIN [Suspect]
     Active Substance: PRAVASTATIN

REACTIONS (1)
  - Drug hypersensitivity [None]
